FAERS Safety Report 6206889-8 (Version None)
Quarter: 2009Q2

REPORT INFORMATION
  Report Type: 
  Country: None (occurrence: None)
  Receive Date: 20090528
  Receipt Date: 20090519
  Transmission Date: 20091009
  Serious: Yes (Hospitalization)
  Sender: FDA-Public Use
  Company Number: IT-ASTRAZENECA-2009SE01804

PATIENT
  Age: 8985 Day
  Sex: Female

DRUGS (4)
  1. RATACAND [Suspect]
     Indication: DIABETIC RETINOPATHY
     Route: 048
     Dates: start: 20090423, end: 20090504
  2. METFORMINA [Concomitant]
     Route: 048
  3. NOVORAPID [Concomitant]
  4. LANTUS [Concomitant]

REACTIONS (1)
  - VASCULITIS [None]
